FAERS Safety Report 11802225 (Version 1)
Quarter: 2015Q4

REPORT INFORMATION
  Report Type: Spontaneous
  Country: DE (occurrence: DE)
  Receive Date: 20151204
  Receipt Date: 20151204
  Transmission Date: 20160305
  Serious: Yes (Other)
  Sender: FDA-Public Use
  Company Number: DE-PFIZER INC-2015423032

PATIENT
  Age: 38 Year
  Sex: Female

DRUGS (1)
  1. ZOLOFT [Suspect]
     Active Substance: SERTRALINE HYDROCHLORIDE
     Dosage: 1 DF, 3X/DAY

REACTIONS (2)
  - Suicidal ideation [Unknown]
  - Homicide [Unknown]

NARRATIVE: CASE EVENT DATE: 2012
